FAERS Safety Report 17824496 (Version 1)
Quarter: 2020Q2

REPORT INFORMATION
  Report Type: Spontaneous
  Country: US (occurrence: US)
  Receive Date: 20200523
  Receipt Date: 20200523
  Transmission Date: 20200714
  Serious: Yes (Hospitalization)
  Sender: FDA-Public Use
  Company Number: None

PATIENT
  Sex: Male
  Weight: 125.74 kg

DRUGS (9)
  1. RITUXIMAB (MOAB C2B8 ANTI CD20, CHIMERIC) [Suspect]
     Active Substance: RITUXIMAB
     Dates: end: 20200423
  2. PROCHLORPERAZINE. [Concomitant]
     Active Substance: PROCHLORPERAZINE
  3. LISINOPRIL. [Concomitant]
     Active Substance: LISINOPRIL
  4. METOPROLOL. [Concomitant]
     Active Substance: METOPROLOL
  5. PREDNISOLONE. [Concomitant]
     Active Substance: PREDNISOLONE
  6. CYTARABINE. [Suspect]
     Active Substance: CYTARABINE
     Dates: end: 20200424
  7. ACYCLOVIR. [Suspect]
     Active Substance: ACYCLOVIR
  8. METFORMIN [Concomitant]
     Active Substance: METFORMIN HYDROCHLORIDE
  9. NOVOLIN NOS [Concomitant]
     Active Substance: INSULIN HUMAN

REACTIONS (16)
  - Acute kidney injury [None]
  - Vomiting [None]
  - Limb injury [None]
  - Pseudomonas test positive [None]
  - Febrile neutropenia [None]
  - Cellulitis [None]
  - Nausea [None]
  - Thrombocytopenia [None]
  - Bacillus test positive [None]
  - Anaemia [None]
  - Pseudomonal bacteraemia [None]
  - Feeling cold [None]
  - Pyrexia [None]
  - Sepsis [None]
  - Procalcitonin increased [None]
  - Injury [None]

NARRATIVE: CASE EVENT DATE: 20200503
